FAERS Safety Report 6220086-1 (Version None)
Quarter: 2009Q2

REPORT INFORMATION
  Report Type: 
  Country: None (occurrence: None)
  Receive Date: 20090609
  Receipt Date: 20090527
  Transmission Date: 20091009
  Serious: Yes (Life-Threatening, Other)
  Sender: FDA-Public Use
  Company Number: FR-ELI_LILLY_AND_COMPANY-FR200905005960

PATIENT
  Age: 77 Year
  Sex: Female

DRUGS (1)
  1. BYETTA [Suspect]
     Dosage: 10 UG, 2/D
     Route: 058
     Dates: start: 20090401, end: 20090501

REACTIONS (3)
  - DRUG LEVEL ABOVE THERAPEUTIC [None]
  - GASTRIC HAEMORRHAGE [None]
  - POLYP [None]
